FAERS Safety Report 6704726-6 (Version None)
Quarter: 2010Q2

REPORT INFORMATION
  Report Type: 
  Country: None (occurrence: None)
  Receive Date: 20100430
  Receipt Date: 20100420
  Transmission Date: 20101027
  Serious: Yes (Other)
  Sender: FDA-Public Use
  Company Number: US-ABBOTT-10P-163-0639908-00

PATIENT
  Sex: Female
  Weight: 55.388 kg

DRUGS (3)
  1. HUMIRA [Suspect]
     Indication: POLYARTHRITIS
     Route: 058
     Dates: start: 20070420
  2. HUMIRA [Suspect]
     Indication: RHEUMATOID ARTHRITIS
  3. PAIN MEDICATIONS [Concomitant]
     Indication: PAIN

REACTIONS (4)
  - ARTHRALGIA [None]
  - DRUG DOSE OMISSION [None]
  - MACULAR DEGENERATION [None]
  - MUSCULOSKELETAL STIFFNESS [None]
